FAERS Safety Report 6160212-6 (Version None)
Quarter: 2009Q2

REPORT INFORMATION
  Report Type: 
  Country: None (occurrence: None)
  Receive Date: 20090420
  Receipt Date: 20090410
  Transmission Date: 20091009
  Serious: Yes (Hospitalization)
  Sender: FDA-Public Use
  Company Number: B0562538A

PATIENT
  Sex: Male

DRUGS (2)
  1. ARIXTRA [Suspect]
     Indication: ATRIAL FLUTTER
     Route: 058
     Dates: start: 20080701
  2. CORDARONE [Concomitant]
     Indication: ATRIAL FLUTTER
     Route: 065
     Dates: start: 20081124

REACTIONS (4)
  - HAEMATOMA [None]
  - INCORRECT DRUG ADMINISTRATION DURATION [None]
  - INDURATION [None]
  - OFF LABEL USE [None]
